FAERS Safety Report 14914865 (Version 1)
Quarter: 2018Q2

REPORT INFORMATION
  Report Type: Report from Study
  Country: JP (occurrence: JP)
  Receive Date: 20180518
  Receipt Date: 20180518
  Transmission Date: 20180711
  Serious: Yes (Hospitalization)
  Sender: FDA-Public Use
  Company Number: JP-EISAI MEDICAL RESEARCH-EC-2018-039980

PATIENT
  Age: 62 Year
  Sex: Female
  Weight: 56 kg

DRUGS (4)
  1. E KEPPRA [Concomitant]
     Active Substance: LEVETIRACETAM
  2. FYCOMPA [Suspect]
     Active Substance: PERAMPANEL
     Route: 048
     Dates: start: 20171204, end: 20171217
  3. FYCOMPA [Suspect]
     Active Substance: PERAMPANEL
     Indication: PARTIAL SEIZURES
     Route: 048
     Dates: start: 20171120, end: 20171203
  4. DEPAKENE [Concomitant]
     Active Substance: VALPROIC ACID

REACTIONS (1)
  - Confusional state [Recovered/Resolved]

NARRATIVE: CASE EVENT DATE: 20171214
